FAERS Safety Report 5025949-0 (Version None)
Quarter: 2006Q2

REPORT INFORMATION
  Report Type: 
  Country: None (occurrence: None)
  Receive Date: 20060608
  Receipt Date: 20060526
  Transmission Date: 20061013
  Serious: Yes (Hospitalization, Other)
  Sender: FDA-Public Use
  Company Number: HQWYE567730MAY06

PATIENT
  Age: 79 Year
  Sex: Female

DRUGS (7)
  1. CORDARONE [Suspect]
     Indication: ARRHYTHMIA
     Dosage: 200 MG 1X PER 1 DAY ORAL
     Route: 048
  2. CORDARONE [Suspect]
     Indication: ATRIAL FIBRILLATION
     Dosage: 200 MG 1X PER 1 DAY ORAL
     Route: 048
  3. DILTIAZEM HYDROCHLORIDE [Suspect]
     Indication: CORONARY ARTERY INSUFFICIENCY
     Dosage: 300 MG 1X PER 1 DAY ORAL
     Route: 048
     Dates: end: 20060225
  4. DILTIAZEM HYDROCHLORIDE [Suspect]
     Indication: HYPERTENSION
     Dosage: 300 MG 1X PER 1 DAY ORAL
     Route: 048
     Dates: end: 20060225
  5. SPIRONOLACTONE [Concomitant]
  6. COVERSYL (PERINDOPRIL) [Concomitant]
  7. FLUINDIONE (FLUINDIONE) [Concomitant]

REACTIONS (3)
  - PULSE PRESSURE DECREASED [None]
  - SINUS ARREST [None]
  - SYNCOPE [None]
